FAERS Safety Report 5900955-X (Version None)
Quarter: 2008Q3

REPORT INFORMATION
  Report Type: 
  Country: None (occurrence: None)
  Receive Date: 20080924
  Receipt Date: 20080912
  Transmission Date: 20090109
  Serious: Yes (Life-Threatening, Hospitalization)
  Sender: FDA-Public Use
  Company Number: GXKR2008TW08780

PATIENT
  Age: 30 Year
  Sex: Female

DRUGS (2)
  1. TRAZODONE HCL [Suspect]
     Indication: MAJOR DEPRESSION
     Dosage: 100 MG/DAY; APPR. 2000 MG, ABOUT 40 TABLETS, ORAL
     Route: 048
  2. DIAZEPAM [Concomitant]

REACTIONS (8)
  - APATHY [None]
  - ARRHYTHMIA [None]
  - CIRCULATORY COLLAPSE [None]
  - ELECTROCARDIOGRAM QT PROLONGED [None]
  - INTENTIONAL OVERDOSE [None]
  - SOMNOLENCE [None]
  - TORSADE DE POINTES [None]
  - VENTRICULAR EXTRASYSTOLES [None]
